FAERS Safety Report 15976729 (Version 1)
Quarter: 2019Q1

REPORT INFORMATION
  Report Type: Spontaneous
  Country: RO (occurrence: RO)
  Receive Date: 20190218
  Receipt Date: 20190218
  Transmission Date: 20190418
  Serious: Yes (Other)
  Sender: FDA-Public Use
  Company Number: RO-SA-2019SA029725

PATIENT
  Age: 76 Year
  Sex: Female

DRUGS (4)
  1. BCG VACCINE [Concomitant]
     Active Substance: BCG VACCINE
     Indication: BLADDER NEOPLASM
     Dosage: UNK
     Dates: start: 201802
  2. DULCOLAX NOS [Suspect]
     Active Substance: BISACODYL OR DOCUSATE SODIUM
     Indication: CONSTIPATION
     Dosage: 5 MG, 1X
     Route: 048
     Dates: start: 20190128, end: 20190130
  3. LERIDIP [Concomitant]
     Indication: HYPERTENSION
     Dosage: 10 MG
  4. PROPRANOLOL [Concomitant]
     Active Substance: PROPRANOLOL HYDROCHLORIDE
     Indication: HYPERTENSION
     Dosage: UNK

REACTIONS (15)
  - Amnesia [Recovered/Resolved]
  - Vomiting [Recovered/Resolved]
  - Anaphylactic shock [Recovered/Resolved]
  - Haematochezia [Recovered/Resolved]
  - Balance disorder [Recovered/Resolved]
  - Abdominal pain [Recovered/Resolved]
  - Anorectal discomfort [Not Recovered/Not Resolved]
  - Dizziness [Recovered/Resolved]
  - Diarrhoea [Recovered/Resolved]
  - Hyperhidrosis [Recovered/Resolved]
  - Fluid retention [Recovered/Resolved]
  - Urinary hesitation [Recovered/Resolved]
  - Nausea [Recovered/Resolved]
  - Vision blurred [Recovered/Resolved]
  - Dehydration [Recovered/Resolved]

NARRATIVE: CASE EVENT DATE: 20190128
